FAERS Safety Report 5506963-5 (Version None)
Quarter: 2007Q4

REPORT INFORMATION
  Report Type: 
  Country: None (occurrence: None)
  Receive Date: 20071102
  Receipt Date: 20071024
  Transmission Date: 20080405
  Serious: Yes (Other)
  Sender: FDA-Public Use
  Company Number: DSU-2007-00777

PATIENT
  Age: 50 Year
  Sex: Male

DRUGS (2)
  1. BENICAR [Suspect]
     Indication: BLOOD PRESSURE INCREASED
     Dosage: PER ORAL
     Route: 048
  2. INDERAL [Suspect]
     Indication: BLOOD PRESSURE INCREASED

REACTIONS (1)
  - HAEMORRHAGIC STROKE [None]
